FAERS Safety Report 6429654-5 (Version None)
Quarter: 2009Q4

REPORT INFORMATION
  Report Type: 
  Country: None (occurrence: None)
  Receive Date: 20091106
  Receipt Date: 20091028
  Transmission Date: 20100525
  Serious: Yes (Other)
  Sender: FDA-Public Use
  Company Number: JP-RANBAXY-2009RR-28912

PATIENT
  Age: 70 Year
  Sex: Male

DRUGS (4)
  1. FENOFIBRATE [Suspect]
     Indication: HYPERLIPIDAEMIA
     Dosage: 200 MG, UNK
     Dates: start: 20070627, end: 20090926
  2. ALENDRONATE SODIUM [Concomitant]
     Dosage: UNK
     Route: 065
     Dates: start: 20090901
  3. ELCATONIN [Concomitant]
     Route: 065
  4. SODIUM HYALURONATE [Concomitant]
     Route: 065

REACTIONS (3)
  - BLOOD CREATINE PHOSPHOKINASE INCREASED [None]
  - BLOOD CREATININE INCREASED [None]
  - HAEMATURIA [None]
